FAERS Safety Report 7430780-2 (Version None)
Quarter: 2011Q2

REPORT INFORMATION
  Report Type: 
  Country: None (occurrence: None)
  Receive Date: 20110419
  Receipt Date: 20110419
  Transmission Date: 20111010
  Serious: Yes (Other)
  Sender: FDA-Public Use
  Company Number: None

PATIENT
  Sex: Male

DRUGS (1)
  1. REVLIMID [Suspect]
     Indication: MYELODYSPLASTIC SYNDROME
     Dosage: 5MG DAILY X 21 DAYS
     Dates: start: 20110410, end: 20110418

REACTIONS (3)
  - PYREXIA [None]
  - MASS [None]
  - JOINT SWELLING [None]
